FAERS Safety Report 23315887 (Version 2)
Quarter: 2024Q1

REPORT INFORMATION
  Report Type: Report from Study
  Country: CN (occurrence: CN)
  Receive Date: 20231219
  Receipt Date: 20240117
  Transmission Date: 20240410
  Serious: No
  Sender: FDA-Public Use
  Company Number: CN-PFIZER INC-PV202300202923

PATIENT
  Age: 88 Year
  Sex: Female
  Weight: 50 kg

DRUGS (23)
  1. NIRMATRELVIR\RITONAVIR [Suspect]
     Active Substance: NIRMATRELVIR\RITONAVIR
     Indication: COVID-19
     Dosage: [NIRMATRELVIR 300 MG]/[RITONAVIR 100 MG] , 2X/DAY
     Route: 048
     Dates: start: 20220525, end: 20220602
  2. ENOXAPARIN SODIUM [Concomitant]
     Active Substance: ENOXAPARIN SODIUM
     Indication: Anticoagulant therapy
     Dosage: UNK
     Route: 058
     Dates: start: 20220525, end: 20220525
  3. ENOXAPARIN SODIUM [Concomitant]
     Active Substance: ENOXAPARIN SODIUM
     Dosage: UNK
     Route: 058
     Dates: start: 20220525, end: 20220530
  4. ENOXAPARIN SODIUM [Concomitant]
     Active Substance: ENOXAPARIN SODIUM
     Dosage: UNK
     Route: 058
     Dates: start: 20220530, end: 20220602
  5. AMLODIPINE BESYLATE [Concomitant]
     Active Substance: AMLODIPINE BESYLATE
     Indication: Blood pressure management
     Dosage: UNK
     Route: 048
     Dates: start: 20220525, end: 20220602
  6. ALPRAZOLAM [Concomitant]
     Active Substance: ALPRAZOLAM
     Indication: Sleep disorder
     Dosage: UNK
     Route: 048
     Dates: start: 20220525, end: 20220602
  7. ALPRAZOLAM [Concomitant]
     Active Substance: ALPRAZOLAM
     Dosage: UNK
     Route: 048
     Dates: start: 20220530, end: 20220602
  8. AMBROXOL HYDROCHLORIDE [Concomitant]
     Active Substance: AMBROXOL HYDROCHLORIDE
     Indication: Productive cough
     Dosage: UNK
     Route: 042
     Dates: start: 20220530, end: 20220530
  9. AMBROXOL HYDROCHLORIDE [Concomitant]
     Active Substance: AMBROXOL HYDROCHLORIDE
     Dosage: UNK
     Route: 042
     Dates: start: 20220530, end: 20220602
  10. THYMALFASIN [Concomitant]
     Active Substance: THYMALFASIN
     Indication: Anticoagulant therapy
     Dosage: UNK
     Route: 058
     Dates: start: 20220527, end: 20220527
  11. THYMALFASIN [Concomitant]
     Active Substance: THYMALFASIN
     Dosage: UNK
     Route: 058
     Dates: start: 20220530, end: 20220530
  12. THYMALFASIN [Concomitant]
     Active Substance: THYMALFASIN
     Dosage: UNK
     Route: 058
     Dates: start: 20220530, end: 20220602
  13. IPRATROPIUM BROMIDE [Concomitant]
     Active Substance: IPRATROPIUM BROMIDE\IPRATROPIUM BROMIDE ANHYDROUS
     Indication: Obstructive airways disorder
     Dosage: UNK, SOLUTION FOR INHALATION
     Route: 058
     Dates: start: 20220530, end: 20220531
  14. BUDESONIDE [Concomitant]
     Active Substance: BUDESONIDE
     Indication: Obstructive airways disorder
     Dosage: UNK
     Route: 055
     Dates: start: 20220530, end: 20220530
  15. BUDESONIDE [Concomitant]
     Active Substance: BUDESONIDE
     Dosage: UNK, INHALATION SUSPENSION
     Route: 055
     Dates: start: 20220530, end: 20220531
  16. ELTROMBOPAG OLAMINE [Concomitant]
     Active Substance: ELTROMBOPAG OLAMINE
     Indication: Procoagulant therapy
     Dosage: UNK
     Route: 048
     Dates: start: 20220530, end: 20220602
  17. GINKGO [Concomitant]
     Active Substance: GINKGO
     Indication: Prophylaxis
     Dosage: UNK
     Route: 048
     Dates: start: 20220530, end: 20220602
  18. ACETYLCYSTEINE [Concomitant]
     Active Substance: ACETYLCYSTEINE
     Indication: Productive cough
     Dosage: UNK
     Route: 048
     Dates: start: 20220530, end: 20220602
  19. XUAN FEI ZHI SOU [Concomitant]
     Indication: Cough
     Dosage: UNK, MIXTURE
     Route: 048
     Dates: start: 20220525, end: 20220525
  20. XUAN FEI ZHI SOU [Concomitant]
     Dosage: UNK, MIXTURE
     Route: 048
     Dates: start: 20220530, end: 20220602
  21. DIAZEPAM [Concomitant]
     Active Substance: DIAZEPAM
     Indication: Sleep disorder
     Dosage: UNK
     Route: 048
     Dates: start: 20220525, end: 20220525
  22. GRANULOCYTE COLONY-STIMULATING FACTOR NOS [Concomitant]
     Active Substance: GRANULOCYTE COLONY-STIMULATING FACTOR NOS
     Indication: White blood cell agglutination present
     Dosage: UNK, HUMAN
     Dates: start: 20220527, end: 20220527
  23. QIANG LI PI PA [Concomitant]
     Indication: Productive cough
     Dosage: UNK, QIANGLI PIPA LU
     Route: 048
     Dates: start: 20220527, end: 20220527

REACTIONS (1)
  - Overdose [Unknown]

NARRATIVE: CASE EVENT DATE: 20220530
